FAERS Safety Report 10949170 (Version 5)
Quarter: 2015Q3

REPORT INFORMATION
  Report Type: Report from Study
  Country: LU (occurrence: LU)
  Receive Date: 20150324
  Receipt Date: 20150814
  Transmission Date: 20151125
  Serious: Yes (Hospitalization, Other)
  Sender: FDA-Public Use
  Company Number: LU-ABBVIE-15P-098-1362497-00

PATIENT
  Sex: Male

DRUGS (14)
  1. DUODOPA [Suspect]
     Active Substance: CARBIDOPA\LEVODOPA
     Dosage: AM DOSE=6.5ML, CD=2.1ML/H FOR 16HRS, ED=1.5ML
     Route: 050
     Dates: start: 20130626, end: 20150325
  2. DAFALGAN [Concomitant]
     Active Substance: ACETAMINOPHEN
     Indication: PRODUCT USED FOR UNKNOWN INDICATION
  3. CONTRAMAL [Concomitant]
     Active Substance: TRAMADOL HYDROCHLORIDE
     Indication: PRODUCT USED FOR UNKNOWN INDICATION
  4. DUODOPA [Suspect]
     Active Substance: CARBIDOPA\LEVODOPA
     Dosage: AM DOSE=6.3ML, CD=1.8ML/H FOR 16HRS AND ED=1.3ML
     Route: 050
     Dates: start: 20150602, end: 20150807
  5. DUODOPA [Suspect]
     Active Substance: CARBIDOPA\LEVODOPA
     Indication: PARKINSON^S DISEASE
     Route: 050
     Dates: start: 20120925, end: 20121108
  6. ASAFLOW [Concomitant]
     Active Substance: ASPIRIN
     Indication: PRODUCT USED FOR UNKNOWN INDICATION
  7. ZANIDIP [Concomitant]
     Active Substance: LERCANIDIPINE HYDROCHLORIDE
     Indication: PRODUCT USED FOR UNKNOWN INDICATION
  8. DUODOPA [Suspect]
     Active Substance: CARBIDOPA\LEVODOPA
     Dosage: AM DOSE=6.1ML, CD=2.1ML/H FOR 16HRS, ED=1.3ML
     Route: 050
     Dates: start: 20121227, end: 20130626
  9. DUODOPA [Suspect]
     Active Substance: CARBIDOPA\LEVODOPA
     Dosage: AM: 6,3ML; CD: 2,1 ML/H FOR 16HRS; ED: 1,3ML
     Route: 050
     Dates: start: 20150807
  10. DUODOPA [Suspect]
     Active Substance: CARBIDOPA\LEVODOPA
     Dosage: AM DOSE= 6.3ML, CONTIN DOSE= 2.2ML/H DURING 16HRS, EXTRA DOSE=1.3ML
     Route: 050
     Dates: start: 20150325, end: 20150602
  11. AZILECT [Concomitant]
     Active Substance: RASAGILINE MESYLATE
     Indication: PARKINSON^S DISEASE
     Route: 048
  12. AZILECT [Concomitant]
     Active Substance: RASAGILINE MESYLATE
  13. PROLOPA HBS [Concomitant]
     Indication: PARKINSON^S DISEASE
     Dosage: FORM STRENGTH: 100MG/25MG; BETWEEN 12AM AND 2AM
  14. DUODOPA [Suspect]
     Active Substance: CARBIDOPA\LEVODOPA
     Dosage: AM DOSE=6.1ML, CD=1.9ML/H FOR 16HRS, ED=1.2ML
     Route: 050
     Dates: start: 20121108, end: 20121227

REACTIONS (5)
  - Balance disorder [Unknown]
  - Fall [Unknown]
  - Aphasia [Unknown]
  - Cerebral haemorrhage [Unknown]
  - Muscle rigidity [Unknown]
